FAERS Safety Report 8287254-9 (Version None)
Quarter: 2012Q2

REPORT INFORMATION
  Report Type: 
  Country: None (occurrence: None)
  Receive Date: 20120411
  Receipt Date: 20120330
  Transmission Date: 20120825
  Serious: Yes (Hospitalization)
  Sender: FDA-Public Use
  Company Number: DSA_56068_2012

PATIENT
  Age: 70 Year
  Sex: Female

DRUGS (12)
  1. CIPROFLOXACIN [Suspect]
     Dosage: (500 MG BID ORAL)
     Route: 048
     Dates: start: 20120214
  2. PANTOPRAZOLE [Suspect]
     Indication: PRODUCT USED FOR UNKNOWN INDICATION
     Dosage: INTRAVENOUS (NOT OTHERWISE SPECIFIED)
     Route: 042
     Dates: start: 20120210, end: 20120214
  3. LOVENOX [Suspect]
     Indication: PRODUCT USED FOR UNKNOWN INDICATION
     Dosage: (4000 IU QD SUBCUTANEOUS)
     Route: 058
     Dates: start: 20120210
  4. LAMOTRGINE [Concomitant]
  5. VITAMIN B1 TAB [Concomitant]
  6. CIPROFLOXACIN [Suspect]
     Indication: PRODUCT USED FOR UNKNOWN INDICATION
     Dosage: (400 MG BID INTRAVENOUS (NOT OTHERWISE SPECIFIED))
     Route: 042
     Dates: start: 20120210, end: 20120214
  7. VITAMIN B6 [Concomitant]
  8. SPASFON /00765801/ [Concomitant]
  9. SMECTITE [Concomitant]
  10. FLAGYL [Suspect]
     Indication: PRODUCT USED FOR UNKNOWN INDICATION
     Dosage: (500 MG TID ORAL)
     Route: 048
     Dates: start: 20120211, end: 20120216
  11. PANTOPRAZOLE [Suspect]
     Dosage: (40 MG QD ORAL)
     Route: 048
     Dates: start: 20120214
  12. ATORVASTATIN [Concomitant]

REACTIONS (1)
  - CYTOLYTIC HEPATITIS [None]
